FAERS Safety Report 11402698 (Version 1)
Quarter: 2015Q3

REPORT INFORMATION
  Report Type: Spontaneous
  Country: US (occurrence: US)
  Receive Date: 20150821
  Receipt Date: 20150821
  Transmission Date: 20151125
  Serious: No
  Sender: FDA-Public Use
  Company Number: US-ROCHE-1334979

PATIENT
  Sex: Female
  Weight: 65.83 kg

DRUGS (4)
  1. RIBAVIRIN. [Suspect]
     Active Substance: RIBAVIRIN
     Indication: HEPATITIS C
     Route: 048
     Dates: start: 20131217
  2. ACTIGALL [Concomitant]
     Active Substance: URSODIOL
  3. NIFEDIPINE. [Concomitant]
     Active Substance: NIFEDIPINE
  4. PEGASYS [Suspect]
     Active Substance: PEGINTERFERON ALFA-2A
     Indication: HEPATITIS C
     Route: 058
     Dates: start: 20131217

REACTIONS (1)
  - Hyperhidrosis [Not Recovered/Not Resolved]
